FAERS Safety Report 13372149 (Version 1)
Quarter: 2017Q1

REPORT INFORMATION
  Report Type: Spontaneous
  Country: US (occurrence: US)
  Receive Date: 20170327
  Receipt Date: 20170327
  Transmission Date: 20170429
  Serious: No
  Sender: FDA-Public Use
  Company Number: US-ASTRAZENECA-2017SE29464

PATIENT
  Age: 71 Year
  Sex: Female
  Weight: 45.4 kg

DRUGS (1)
  1. MOVANTIK [Suspect]
     Active Substance: NALOXEGOL OXALATE
     Indication: CONSTIPATION
     Route: 048

REACTIONS (3)
  - Musculoskeletal chest pain [Not Recovered/Not Resolved]
  - Hypophagia [Unknown]
  - Nausea [Unknown]
